FAERS Safety Report 19566413 (Version 1)
Quarter: 2021Q3

REPORT INFORMATION
  Report Type: Spontaneous
  Country: FR (occurrence: FR)
  Receive Date: 20210716
  Receipt Date: 20210716
  Transmission Date: 20211014
  Serious: Yes (Life-Threatening)
  Sender: FDA-Public Use
  Company Number: FR-TEVA-2021-FR-1931543

PATIENT
  Age: 62 Year
  Sex: Female

DRUGS (2)
  1. AMOXICILLINE [Suspect]
     Active Substance: AMOXICILLIN
     Indication: PAROTITIS
     Dosage: 1DOSAGEFORM
     Route: 048
     Dates: end: 20210323
  2. IBUPROFENE [Concomitant]
     Active Substance: IBUPROFEN
     Dosage: 2DOSAGEFORM
     Route: 048

REACTIONS (1)
  - Anaphylactic reaction [Recovered/Resolved]

NARRATIVE: CASE EVENT DATE: 20210323
